FAERS Safety Report 10221497 (Version 1)
Quarter: 2014Q2

REPORT INFORMATION
  Report Type: Spontaneous
  Country: US (occurrence: None)
  Receive Date: 20140605
  Receipt Date: 20140605
  Transmission Date: 20141212
  Serious: No
  Sender: FDA-Public Use
  Company Number: None

PATIENT
  Age: 79 Year
  Sex: Male

DRUGS (8)
  1. EXJADE 500 MG NOVARTIS PHARMACEUTICALS CORPORATION [Suspect]
     Route: 048
     Dates: start: 20130514
  2. SIMVASTATIN [Concomitant]
  3. VITAMIN C [Concomitant]
  4. VITAMIN D [Concomitant]
  5. LORATADINE [Concomitant]
  6. ASPIRIN [Concomitant]
  7. METOPROLOL [Concomitant]
  8. IMMODIUM [Concomitant]

REACTIONS (1)
  - Cerebrovascular accident [None]
